FAERS Safety Report 14449105 (Version 1)
Quarter: 2018Q1

REPORT INFORMATION
  Report Type: Spontaneous
  Country: US (occurrence: US)
  Receive Date: 20180126
  Receipt Date: 20180126
  Transmission Date: 20180509
  Serious: Yes (Hospitalization, Other)
  Sender: FDA-Public Use
  Company Number: US-DSJP-DSU-2017-137063

PATIENT

DRUGS (2)
  1. BENICAR [Suspect]
     Active Substance: OLMESARTAN MEDOXOMIL
     Dosage: 40 MG, UNK
     Dates: start: 20110705
  2. BENICAR [Suspect]
     Active Substance: OLMESARTAN MEDOXOMIL
     Indication: HYPERTENSION
     Dosage: 20 MG, UNK
     Dates: start: 20110601, end: 20110808

REACTIONS (7)
  - Faeces discoloured [Unknown]
  - Reactive gastropathy [Unknown]
  - Haematochezia [Unknown]
  - Melaena [Unknown]
  - Diverticulum [Unknown]
  - Sprue-like enteropathy [Unknown]
  - Dyspepsia [Unknown]

NARRATIVE: CASE EVENT DATE: 20110705
